FAERS Safety Report 8165942-2 (Version None)
Quarter: 2012Q1

REPORT INFORMATION
  Report Type: 
  Country: None (occurrence: None)
  Receive Date: 20120227
  Receipt Date: 20111228
  Transmission Date: 20120608
  Serious: No
  Sender: FDA-Public Use
  Company Number: US-MYLANLABS-2011S1024443

PATIENT
  Age: 20 Year
  Sex: Female

DRUGS (3)
  1. AMNESTEEM [Suspect]
     Route: 048
     Dates: start: 20110101
  2. AMNESTEEM [Suspect]
     Route: 048
     Dates: start: 20110101
  3. AMNESTEEM [Suspect]
     Route: 048
     Dates: end: 20110101

REACTIONS (1)
  - DRUG INEFFECTIVE [None]
